FAERS Safety Report 7241539-3 (Version None)
Quarter: 2011Q1

REPORT INFORMATION
  Report Type: 
  Country: None (occurrence: None)
  Receive Date: 20110124
  Receipt Date: 20110110
  Transmission Date: 20110831
  Serious: Yes (Hospitalization)
  Sender: FDA-Public Use
  Company Number: PK-WATSON-2011-00408

PATIENT
  Age: 74 Year
  Sex: Female

DRUGS (1)
  1. METRONIDAZOLE [Suspect]
     Indication: INFECTION
     Dosage: 1000 MG, DAILY
     Route: 065

REACTIONS (1)
  - ENCEPHALOPATHY [None]
